FAERS Safety Report 7449860-0 (Version None)
Quarter: 2011Q2

REPORT INFORMATION
  Report Type: 
  Country: None (occurrence: None)
  Receive Date: 20110428
  Receipt Date: 20110428
  Transmission Date: 20111010
  Serious: Yes (Other)
  Sender: FDA-Public Use
  Company Number: None

PATIENT
  Age: 39 Year
  Sex: Male
  Weight: 72.5755 kg

DRUGS (1)
  1. PROPECIA [Suspect]
     Indication: ALOPECIA
     Dosage: 1MG DAILY PO
     Route: 048
     Dates: start: 20030101, end: 20110410

REACTIONS (9)
  - GYNAECOMASTIA [None]
  - VARICOCELE [None]
  - FATIGUE [None]
  - OSTEONECROSIS [None]
  - LOSS OF LIBIDO [None]
  - ERECTILE DYSFUNCTION [None]
  - APATHY [None]
  - VITAMIN D DECREASED [None]
  - MENTAL IMPAIRMENT [None]
